FAERS Safety Report 11221569 (Version 1)
Quarter: 2015Q2

REPORT INFORMATION
  Report Type: Spontaneous
  Country: ES (occurrence: ES)
  Receive Date: 20150626
  Receipt Date: 20150626
  Transmission Date: 20150821
  Serious: Yes (Hospitalization)
  Sender: FDA-Public Use
  Company Number: ES-UNITED THERAPEUTICS-UNT-2015-007342

PATIENT
  Age: 3 Year
  Sex: Female
  Weight: 13.6 kg

DRUGS (4)
  1. UNITUXIN [Suspect]
     Active Substance: DINUTUXIMAB
     Indication: NEUROBLASTOMA
     Dosage: 40 MG, UNK
     Route: 041
     Dates: start: 20150504
  2. INTERLEUKINA 2 ASPEN [Suspect]
     Active Substance: ALDESLEUKIN
     Indication: NEUROBLASTOMA
     Dosage: COURSE 1, 6.96 MUI
     Dates: start: 20150526, end: 20150529
  3. METHYLPREDNISOLONE. [Concomitant]
     Active Substance: METHYLPREDNISOLONE
     Indication: MYELITIS
     Dosage: 400 MG, TOTAL DAILY DOSAGE
     Dates: start: 20150612
  4. INTERLEUKINA 2 ASPEN [Suspect]
     Active Substance: ALDESLEUKIN
     Dosage: COURSE 2, 7.8 MILLION IU (MUI)
     Dates: start: 20150602, end: 20150604

REACTIONS (1)
  - Myelitis [Unknown]

NARRATIVE: CASE EVENT DATE: 20150605
